FAERS Safety Report 8519404-0 (Version None)
Quarter: 2012Q3

REPORT INFORMATION
  Report Type: 
  Country: None (occurrence: None)
  Receive Date: 20120718
  Receipt Date: 20120716
  Transmission Date: 20120928
  Serious: No
  Sender: FDA-Public Use
  Company Number: US-TEVA-342301USA

PATIENT
  Age: 60 Year
  Sex: Female

DRUGS (1)
  1. NUVIGIL [Suspect]

REACTIONS (2)
  - INSOMNIA [None]
  - ANXIETY [None]
